FAERS Safety Report 6572613-2 (Version None)
Quarter: 2010Q1

REPORT INFORMATION
  Report Type: 
  Country: None (occurrence: None)
  Receive Date: 20100205
  Receipt Date: 20100125
  Transmission Date: 20100710
  Serious: Yes (Other)
  Sender: FDA-Public Use
  Company Number: CA-CELGENEUS-028-21880-10011987

PATIENT
  Age: 24 Year
  Sex: Female
  Weight: 69.9 kg

DRUGS (4)
  1. REVLIMID [Suspect]
     Route: 048
     Dates: start: 20091214, end: 20100103
  2. REVLIMID [Suspect]
     Route: 065
     Dates: start: 20090921
  3. IBUPROFEN [Concomitant]
     Indication: HEADACHE
     Route: 065
     Dates: start: 20091011
  4. TYLENOL-500 [Concomitant]
     Indication: HEADACHE
     Route: 065
     Dates: start: 20091011

REACTIONS (1)
  - BLOOD HUMAN CHORIONIC GONADOTROPIN INCREASED [None]
